FAERS Safety Report 6681122-1 (Version None)
Quarter: 2010Q2

REPORT INFORMATION
  Report Type: 
  Country: None (occurrence: None)
  Receive Date: 20100414
  Receipt Date: 20100409
  Transmission Date: 20101027
  Serious: Yes (Death)
  Sender: FDA-Public Use
  Company Number: FR-ROCHE-696103

PATIENT
  Age: 2 Month
  Sex: Male
  Weight: 4.5 kg

DRUGS (1)
  1. ROCEPHIN [Suspect]
     Indication: INFECTION
     Dosage: FORM: INJECTION
     Route: 042
     Dates: start: 20100322, end: 20100323

REACTIONS (1)
  - CARDIAC ARREST [None]
